FAERS Safety Report 8514266-X (Version None)
Quarter: 2012Q3

REPORT INFORMATION
  Report Type: 
  Country: None (occurrence: None)
  Receive Date: 20120717
  Receipt Date: 20120711
  Transmission Date: 20120928
  Serious: Yes (Life-Threatening)
  Sender: FDA-Public Use
  Company Number: FR-PFIZER INC-2012166385

PATIENT
  Age: 84 Year
  Sex: Female

DRUGS (4)
  1. FLUCONAZOLE [Suspect]
     Indication: SEPSIS
     Dosage: 100 MG, 1X/DAY
     Route: 042
     Dates: start: 20120606, end: 20120613
  2. ORBENIN CAP [Suspect]
     Indication: SEPSIS
     Dosage: 2 G, 4X/DAY
     Route: 042
     Dates: start: 20120523, end: 20120616
  3. BACTRIM [Suspect]
     Indication: SEPSIS
     Dosage: 800 MG, 3X/DAY
     Route: 042
     Dates: start: 20120522, end: 20120602
  4. RIFADIN [Suspect]
     Indication: SEPSIS
     Dosage: 600 MG, 2X/DAY
     Route: 042
     Dates: start: 20120529, end: 20120616

REACTIONS (3)
  - NEUTROPENIA [None]
  - PANCYTOPENIA [None]
  - THROMBOCYTOPENIA [None]
